FAERS Safety Report 8344255-X (Version None)
Quarter: 2012Q2

REPORT INFORMATION
  Report Type: 
  Country: None (occurrence: None)
  Receive Date: 20120508
  Receipt Date: 20080812
  Transmission Date: 20120825
  Serious: No
  Sender: FDA-Public Use
  Company Number: US-TEVA-US024353

PATIENT
  Sex: Male

DRUGS (1)
  1. TREANDA [Suspect]
     Route: 065

REACTIONS (1)
  - DIARRHOEA [None]
